FAERS Safety Report 9052907 (Version 1)
Quarter: 2013Q1

REPORT INFORMATION
  Report Type: Spontaneous
  Country: US (occurrence: US)
  Receive Date: 20130207
  Receipt Date: 20130207
  Transmission Date: 20140127
  Serious: Yes (Hospitalization, Other)
  Sender: FDA-Public Use
  Company Number: PHHY2012US044134

PATIENT
  Age: 53 Year
  Sex: Male

DRUGS (3)
  1. HYDRALAZINE [Suspect]
     Indication: PORTAL HYPERTENSION
     Dosage: 25 MG, TID
  2. HYDRALAZINE [Suspect]
     Indication: ASCITES
  3. FUROSEMIDE [Concomitant]

REACTIONS (21)
  - Acute febrile neutrophilic dermatosis [Unknown]
  - Papule [Recovering/Resolving]
  - Skin plaque [Recovering/Resolving]
  - Erythema [Recovering/Resolving]
  - Periorbital oedema [Recovering/Resolving]
  - Purpura [Recovering/Resolving]
  - Lupus-like syndrome [Unknown]
  - Rash [Recovering/Resolving]
  - Chest pain [Recovering/Resolving]
  - Serositis [Unknown]
  - Stomatitis [Unknown]
  - Pleural effusion [Unknown]
  - Pericardial effusion [Unknown]
  - Malaise [Unknown]
  - Nausea [Unknown]
  - Vomiting [Unknown]
  - Haematuria [Unknown]
  - Viral infection [Unknown]
  - Blister [Unknown]
  - Aphthous stomatitis [Recovering/Resolving]
  - Oedema [Not Recovered/Not Resolved]
